FAERS Safety Report 19978336 (Version 1)
Quarter: 2021Q4

REPORT INFORMATION
  Report Type: Spontaneous
  Country: US (occurrence: US)
  Receive Date: 20211020
  Receipt Date: 20211020
  Transmission Date: 20220303
  Serious: Yes (Death, Other)
  Sender: FDA-Public Use
  Company Number: US-GLAXOSMITHKLINE-US2021GSK216285

PATIENT
  Sex: Male

DRUGS (12)
  1. ZANTAC [Suspect]
     Active Substance: RANITIDINE HYDROCHLORIDE
     Indication: Dyspepsia
     Dosage: 75 MG, 2-3 TIMES DAILY
     Route: 065
     Dates: start: 198901, end: 201712
  2. ZANTAC [Suspect]
     Active Substance: RANITIDINE HYDROCHLORIDE
     Indication: Gastrooesophageal reflux disease
     Dosage: 150 MG, 2-3 TIMES DAILY
     Route: 065
     Dates: start: 198901, end: 201712
  3. ZANTAC [Suspect]
     Active Substance: RANITIDINE HYDROCHLORIDE
     Indication: Dyspepsia
     Dosage: 75 MG, 2-3 TIMES DAILY
     Route: 065
     Dates: start: 198901, end: 201712
  4. ZANTAC [Suspect]
     Active Substance: RANITIDINE HYDROCHLORIDE
     Indication: Gastrooesophageal reflux disease
     Dosage: 150 MG, 2-3 TIMES DAILY
     Route: 065
     Dates: start: 198901, end: 201712
  5. RANITIDINE [Suspect]
     Active Substance: RANITIDINE
     Indication: Dyspepsia
     Dosage: 75 MG, 2-3 TIMES DAILY
     Route: 065
     Dates: start: 198901, end: 201712
  6. RANITIDINE [Suspect]
     Active Substance: RANITIDINE
     Indication: Gastrooesophageal reflux disease
     Dosage: 150 MG, 2-3 TIMES DAILY
     Route: 065
     Dates: start: 198901, end: 201712
  7. RANITIDINE [Suspect]
     Active Substance: RANITIDINE
     Indication: Dyspepsia
     Dosage: 75 MG, 2-3 TIMES DAILY
     Route: 065
     Dates: start: 198901, end: 201712
  8. RANITIDINE [Suspect]
     Active Substance: RANITIDINE
     Indication: Gastrooesophageal reflux disease
     Dosage: 150 MG, 2-3 TIMES DAILY
     Route: 065
     Dates: start: 198901, end: 201712
  9. RANITIDINE [Suspect]
     Active Substance: RANITIDINE
     Indication: Dyspepsia
     Dosage: 75 MG, 2-3 TIMES DAILY
     Route: 065
     Dates: start: 198901, end: 201712
  10. RANITIDINE [Suspect]
     Active Substance: RANITIDINE
     Indication: Gastrooesophageal reflux disease
     Dosage: 150 MG, 2-3 TIMES DAILY
     Route: 065
     Dates: start: 198901, end: 201712
  11. RANITIDINE [Suspect]
     Active Substance: RANITIDINE
     Indication: Dyspepsia
     Dosage: 75 MG, 2-3 TIMES DAILY
     Route: 065
     Dates: start: 198901, end: 201712
  12. RANITIDINE [Suspect]
     Active Substance: RANITIDINE
     Indication: Gastrooesophageal reflux disease
     Dosage: 150 MG, 2-3 TIMES DAILY
     Route: 065
     Dates: start: 198901, end: 201712

REACTIONS (5)
  - Colorectal cancer [Fatal]
  - Lung neoplasm malignant [Fatal]
  - Testis cancer [Fatal]
  - Prostate cancer [Fatal]
  - Renal cancer [Unknown]
